FAERS Safety Report 13797105 (Version 3)
Quarter: 2017Q3

REPORT INFORMATION
  Report Type: Report from Study
  Country: None (occurrence: US)
  Receive Date: 20170727
  Receipt Date: 20170913
  Transmission Date: 20171127
  Serious: Yes (Hospitalization)
  Sender: FDA-Public Use
  Company Number: US-ABBVIE-17K-163-1866723-00

PATIENT
  Age: 34 Year
  Sex: Male

DRUGS (4)
  1. HUMIRA [Suspect]
     Active Substance: ADALIMUMAB
     Indication: CROHN^S DISEASE
     Dosage: DAY 1
     Route: 058
     Dates: start: 20160721, end: 20160721
  2. HUMIRA [Suspect]
     Active Substance: ADALIMUMAB
     Dosage: DAY 2
     Route: 058
     Dates: start: 20160722, end: 20160722
  3. HUMIRA [Suspect]
     Active Substance: ADALIMUMAB
     Route: 058
     Dates: start: 20160818
  4. HUMIRA [Suspect]
     Active Substance: ADALIMUMAB
     Dosage: DAY 15
     Route: 058
     Dates: start: 20160804, end: 20160804

REACTIONS (10)
  - Fear [Not Recovered/Not Resolved]
  - Intestinal obstruction [Unknown]
  - Depressed mood [Not Recovered/Not Resolved]
  - Insomnia [Not Recovered/Not Resolved]
  - Crohn^s disease [Recovered/Resolved]
  - Constipation [Unknown]
  - Nausea [Not Recovered/Not Resolved]
  - Decreased appetite [Unknown]
  - Anxiety [Not Recovered/Not Resolved]
  - Gastrointestinal sounds abnormal [Recovering/Resolving]

NARRATIVE: CASE EVENT DATE: 20170712
